FAERS Safety Report 12525460 (Version 1)
Quarter: 2016Q3

REPORT INFORMATION
  Report Type: Spontaneous
  Country: US (occurrence: US)
  Receive Date: 20160704
  Receipt Date: 20160704
  Transmission Date: 20161109
  Serious: Yes (Other)
  Sender: FDA-Public Use
  Company Number: US-TEVA-673634USA

PATIENT
  Sex: Female

DRUGS (1)
  1. ZECUITY [Suspect]
     Active Substance: SUMATRIPTAN SUCCINATE
     Route: 062

REACTIONS (9)
  - Application site scab [Unknown]
  - Application site vesicles [Unknown]
  - Application site pain [Unknown]
  - Application site scar [Not Recovered/Not Resolved]
  - Application site discolouration [Unknown]
  - Incorrect drug administration duration [Unknown]
  - Application site exfoliation [Unknown]
  - Application site erythema [Unknown]
  - Application site bruise [Unknown]
